FAERS Safety Report 4784671-6 (Version None)
Quarter: 2005Q3

REPORT INFORMATION
  Report Type: 
  Country: None (occurrence: None)
  Receive Date: 20050930
  Receipt Date: 20020205
  Transmission Date: 20060218
  Serious: Yes (Hospitalization)
  Sender: FDA-Public Use
  Company Number: US-BRISTOL-MYERS SQUIBB COMPANY-12198925

PATIENT
  Age: 71 Year
  Sex: Female

DRUGS (3)
  1. CARBOPLATIN [Suspect]
     Indication: NON-SMALL CELL LUNG CANCER
     Route: 042
     Dates: start: 20020128, end: 20020128
  2. CETUXIMAB [Suspect]
     Indication: NON-SMALL CELL LUNG CANCER
     Dosage: INITIAL DOSE ON 17-SEP-2001
     Route: 042
     Dates: start: 20020128, end: 20020128
  3. GEMZAR [Suspect]
     Indication: NON-SMALL CELL LUNG CANCER
     Dosage: INITIAL DOSE ON 17-SEP-2001
     Route: 042
     Dates: start: 20020128, end: 20020128

REACTIONS (3)
  - HAEMOPTYSIS [None]
  - HYPOXIA [None]
  - THROMBOCYTOPENIA [None]
